FAERS Safety Report 18860245 (Version 3)
Quarter: 2021Q2

REPORT INFORMATION
  Report Type: Report from Study
  Country: US (occurrence: US)
  Receive Date: 20210208
  Receipt Date: 20210513
  Transmission Date: 20210717
  Serious: Yes (Other)
  Sender: FDA-Public Use
  Company Number: US-EMD SERONO-9216782

PATIENT
  Age: 57 Year
  Sex: Male

DRUGS (3)
  1. KETAMINE [Suspect]
     Active Substance: KETAMINE
     Route: 060
     Dates: end: 202101
  2. KETAMINE [Suspect]
     Active Substance: KETAMINE
     Indication: PRODUCT USED FOR UNKNOWN INDICATION
     Dosage: INFUSION
     Dates: end: 202012
  3. MAVENCLAD [Suspect]
     Active Substance: CLADRIBINE
     Indication: MULTIPLE SCLEROSIS
     Dosage: YEAR ONE MONTH ONE THERAPY
     Route: 048
     Dates: start: 20201215

REACTIONS (6)
  - Serotonin syndrome [Recovering/Resolving]
  - Restlessness [Recovering/Resolving]
  - Pain [Recovering/Resolving]
  - Dyskinesia [Recovering/Resolving]
  - Discomfort [Not Recovered/Not Resolved]
  - Formication [Recovering/Resolving]

NARRATIVE: CASE EVENT DATE: 202101
